FAERS Safety Report 19048051 (Version 1)
Quarter: 2021Q1

REPORT INFORMATION
  Report Type: Spontaneous
  Country: IT (occurrence: IT)
  Receive Date: 20210323
  Receipt Date: 20210323
  Transmission Date: 20210420
  Serious: Yes (Death, Hospitalization)
  Sender: FDA-Public Use
  Company Number: IT-PFIZER INC-15157

PATIENT
  Age: 74 Year
  Sex: Male

DRUGS (4)
  1. OXALIPLATIN. [Suspect]
     Active Substance: OXALIPLATIN
     Indication: COLON CANCER
     Dosage: 85 MG/M2, DAY 1, VIA AN IMPLANTED OPEN?ENDED CATHETER; 6TH CYCLE, FREQ: PER_CYCLE
     Route: 042
  2. FLUOROURACIL. [Concomitant]
     Active Substance: FLUOROURACIL
     Indication: COLON CANCER
     Dosage: 400 MG/M2, DAY 1 AS BOLUS, VIA AN IMPLANTED OPEN?ENDED CATHETER; 6TH CYCLE, FREQ: PER_ CYCLE
  3. LEUCOVORIN CALCIUM. [Concomitant]
     Active Substance: LEUCOVORIN CALCIUM
     Indication: COLON CANCER
     Dosage: 100 MG/M2, VIA AN IMPLANTED OPEN?ENDED CATHETER; 6TH CYCLE, FREQ: FORTNIGHTLY
     Route: 042
  4. FLUOROURACIL. [Concomitant]
     Active Substance: FLUOROURACIL
     Dosage: DAY 1,2 BY 22?H CONTINUOUS INFUSION VIA AN IMPLANTED OPEN?ENDED CATHETER; 6TH CYCLE, FREQ: PER_CYCLE
     Route: 042

REACTIONS (2)
  - Dyspnoea [Fatal]
  - Acute respiratory distress syndrome [Fatal]
